FAERS Safety Report 4549465-5 (Version None)
Quarter: 2005Q1

REPORT INFORMATION
  Report Type: 
  Country: None (occurrence: None)
  Receive Date: 20050106
  Receipt Date: 20041220
  Transmission Date: 20050727
  Serious: Yes (Other)
  Sender: FDA-Public Use
  Company Number: 25934

PATIENT
  Age: 30 Year
  Sex: Male

DRUGS (1)
  1. ALDARA [Suspect]
     Indication: SKIN PAPILLOMA
     Dosage: TOPICAL
     Route: 061
     Dates: start: 20040101, end: 20040101

REACTIONS (1)
  - AUTOIMMUNE THYROIDITIS [None]
